FAERS Safety Report 12446537 (Version 1)
Quarter: 2016Q2

REPORT INFORMATION
  Report Type: Spontaneous
  Country: DE (occurrence: DE)
  Receive Date: 20160608
  Receipt Date: 20160608
  Transmission Date: 20160815
  Serious: Yes (Hospitalization)
  Sender: FDA-Public Use
  Company Number: DE-AMGEN-DEUSP2016021274

PATIENT
  Age: 64 Year
  Sex: Female

DRUGS (2)
  1. METHOTREXATE (METHOTREXATE SODIUM) [Concomitant]
     Active Substance: METHOTREXATE SODIUM
     Dosage: UNK
  2. ENBREL [Suspect]
     Active Substance: ETANERCEPT
     Indication: PSORIATIC ARTHROPATHY
     Dosage: 50 MG, WEEKLY
     Route: 065
     Dates: start: 20150610

REACTIONS (8)
  - Accident [Not Recovered/Not Resolved]
  - Cough [Unknown]
  - Blister [Unknown]
  - Skin disorder [Not Recovered/Not Resolved]
  - Urinary tract infection [Unknown]
  - Dry skin [Not Recovered/Not Resolved]
  - Joint injury [Not Recovered/Not Resolved]
  - Bacterial test positive [Unknown]

NARRATIVE: CASE EVENT DATE: 201510
